FAERS Safety Report 24137896 (Version 1)
Quarter: 2024Q3

REPORT INFORMATION
  Report Type: Spontaneous
  Country: US (occurrence: US)
  Receive Date: 20240725
  Receipt Date: 20240725
  Transmission Date: 20241016
  Serious: Yes (Disabling, Other)
  Sender: BRECKENRIDGE
  Company Number: US-Breckenridge Pharmaceutical, Inc.-2159603

PATIENT
  Age: 88 Year
  Sex: Female
  Weight: 52.273 kg

DRUGS (5)
  1. DULOXETINE HYDROCHLORIDE [Suspect]
     Active Substance: DULOXETINE HYDROCHLORIDE
     Indication: Depression
     Route: 048
  2. DULOXETINE [Suspect]
     Active Substance: DULOXETINE
     Route: 048
  3. VITAMIN D [Concomitant]
     Active Substance: VITAMIN D NOS
     Route: 048
  4. LEVOTHYROXINE [Concomitant]
     Active Substance: LEVOTHYROXINE\LEVOTHYROXINE SODIUM
     Route: 048
  5. BIOTIN [Concomitant]
     Active Substance: BIOTIN

REACTIONS (10)
  - Dyskinesia [Unknown]
  - Diarrhoea [Unknown]
  - Confusional state [Unknown]
  - Memory impairment [Unknown]
  - Hyperhidrosis [Unknown]
  - Asthenia [Unknown]
  - Fatigue [Unknown]
  - Product taste abnormal [Unknown]
  - Dry mouth [Unknown]
  - Hot flush [Unknown]
